FAERS Safety Report 17439475 (Version 1)
Quarter: 2020Q1

REPORT INFORMATION
  Report Type: Spontaneous
  Country: NG (occurrence: NG)
  Receive Date: 20200206
  Receipt Date: 20200206
  Transmission Date: 20200409
  Serious: Yes (Other)
  Sender: FDA-Public Use
  Company Number: None

PATIENT
  Age: 40 Year
  Sex: Male
  Weight: 84 kg

DRUGS (1)
  1. VEGA 100 [Suspect]
     Active Substance: SILDENAFIL CITRATE

REACTIONS (2)
  - Blood urine present [None]
  - Dysuria [None]

NARRATIVE: CASE EVENT DATE: 20200205
